FAERS Safety Report 24833383 (Version 1)
Quarter: 2025Q1

REPORT INFORMATION
  Report Type: Other
  Country: US (occurrence: US)
  Receive Date: 20250111
  Receipt Date: 20250111
  Transmission Date: 20250409
  Serious: Yes (Death, Other)
  Sender: CREEKWOOD PHARMACEUTICALS LLC
  Company Number: US-Creekwood Pharmaceuticals LLC-2168874

PATIENT
  Age: 62 Year
  Sex: Female

DRUGS (1)
  1. HYDROXYCHLOROQUINE SULFATE [Suspect]
     Active Substance: HYDROXYCHLOROQUINE SULFATE
     Indication: Chronic cutaneous lupus erythematosus

REACTIONS (1)
  - Hepatotoxicity [Fatal]
